FAERS Safety Report 14666304 (Version 3)
Quarter: 2018Q2

REPORT INFORMATION
  Report Type: Spontaneous
  Country: PL (occurrence: PL)
  Receive Date: 20180321
  Receipt Date: 20180605
  Transmission Date: 20180711
  Serious: Yes (Other)
  Sender: FDA-Public Use
  Company Number: PL-BAUSCH-BL-2018-007061

PATIENT
  Age: 57 Year
  Sex: Male

DRUGS (9)
  1. DIAZEPAM. [Suspect]
     Active Substance: DIAZEPAM
     Indication: INITIAL INSOMNIA
     Route: 065
  2. MIANSERIN [Suspect]
     Active Substance: MIANSERIN
     Indication: NIGHTMARE
     Dosage: 20 DAYS
     Route: 065
  3. ZOLPIDEM [Suspect]
     Active Substance: ZOLPIDEM\ZOLPIDEM TARTRATE
     Indication: SLEEP DISORDER
     Dosage: 10 DAYS
     Route: 065
  4. METFORMIN [Concomitant]
     Active Substance: METFORMIN HYDROCHLORIDE
     Indication: INSOMNIA
  5. DIAZEPAM. [Interacting]
     Active Substance: DIAZEPAM
     Indication: NIGHTMARE
  6. MIANSERIN [Suspect]
     Active Substance: MIANSERIN
     Indication: INSOMNIA
     Route: 065
  7. FLUOXETINE [Suspect]
     Active Substance: FLUOXETINE HYDROCHLORIDE
     Indication: FIBROMYALGIA
     Dosage: 40 DAYS
     Route: 065
  8. ZOLPIDEM [Suspect]
     Active Substance: ZOLPIDEM\ZOLPIDEM TARTRATE
     Indication: INSOMNIA
     Route: 065
  9. METFORMIN [Concomitant]
     Active Substance: METFORMIN HYDROCHLORIDE
     Indication: TYPE 2 DIABETES MELLITUS
     Route: 065

REACTIONS (8)
  - Initial insomnia [Recovered/Resolved]
  - Drug interaction [Unknown]
  - Poor quality sleep [Recovered/Resolved]
  - Blood glucose fluctuation [Recovering/Resolving]
  - Dry mouth [Recovering/Resolving]
  - Nightmare [Recovering/Resolving]
  - Somnolence [Recovering/Resolving]
  - Off label use [Recovered/Resolved]
